FAERS Safety Report 24873832 (Version 1)
Quarter: 2025Q1

REPORT INFORMATION
  Report Type: Spontaneous
  Country: US (occurrence: US)
  Receive Date: 20250122
  Receipt Date: 20250122
  Transmission Date: 20250408
  Serious: No
  Sender: ROCHE
  Company Number: US-ROCHE-10000182350

PATIENT
  Sex: Male

DRUGS (9)
  1. ACTEMRA ACTPEN [Suspect]
     Active Substance: TOCILIZUMAB
     Indication: Rheumatoid arthritis
     Route: 058
  2. AZELASTINE H SOL 137MCG/S [Concomitant]
  3. ALBUTEROI. SU AER 108 [Concomitant]
  4. DULOXETlNE H CPE 20MG [Concomitant]
  5. GABAPENTlN TAB 800MG [Concomitant]
  6. LISlNOPRlL TAB 10 MG [Concomitant]
  7. METHOTREXATE TAB 2.5 MG [Concomitant]
  8. PREDNISONE [Concomitant]
     Active Substance: PREDNISONE
  9. ZYPITAMAG TAB 4 MG [Concomitant]

REACTIONS (5)
  - Rhinorrhoea [Not Recovered/Not Resolved]
  - Osteoarthritis [Not Recovered/Not Resolved]
  - Gastroenteritis norovirus [Not Recovered/Not Resolved]
  - Illness [Not Recovered/Not Resolved]
  - Platelet count decreased [Not Recovered/Not Resolved]
